FAERS Safety Report 25749831 (Version 1)
Quarter: 2025Q3

REPORT INFORMATION
  Report Type: Spontaneous
  Country: US (occurrence: US)
  Receive Date: 20250902
  Receipt Date: 20250902
  Transmission Date: 20251020
  Serious: No
  Sender: CIPLA
  Company Number: US-CIPLA LTD.-2025US10696

PATIENT

DRUGS (27)
  1. LENALIDOMIDE [Suspect]
     Active Substance: LENALIDOMIDE
     Indication: Plasma cell myeloma
     Dosage: 10 MILLIGRAM, QD (TAKE 1 CAPSULE FOR 14 DAYS ON AND 14 DAYS OFF OF EACH 28 DAYS CYCLE)
     Route: 048
  2. LENALIDOMIDE [Suspect]
     Active Substance: LENALIDOMIDE
     Dosage: 10 MILLIGRAM, QD (TAKE 1 CAPSULE FOR 21 DAYS ON AND 07 DAYS OFF OF EACH 28 DAYS CYCLE)
     Route: 048
  3. LENALIDOMIDE [Suspect]
     Active Substance: LENALIDOMIDE
     Dosage: 10 MILLIGRAM, QD (TAKE 1 CAPSULE FOR 21 DAYS ON AND 07 DAYS OFF OF EACH 28 DAYS CYCLE)
     Route: 048
  4. LENALIDOMIDE [Suspect]
     Active Substance: LENALIDOMIDE
     Dosage: 25 MILLIGRAM, QD (TAKE 1 CAPSULE FOR 14 DAYS ON AND 07 DAYS OFF OF EACH 21 DAYS CYCLE)
     Route: 048
  5. LENALIDOMIDE [Suspect]
     Active Substance: LENALIDOMIDE
     Dosage: 25 MILLIGRAM, QD (TAKE 1 CAPSULE FOR 14 DAYS ON AND 07 DAYS OFF OF EACH 21 DAYS CYCLE)
     Route: 048
  6. LENALIDOMIDE [Suspect]
     Active Substance: LENALIDOMIDE
     Dosage: 25 MILLIGRAM, QD (TAKE 1 CAPSULE FOR 14 DAYS ON AND 07 DAYS OFF OF EACH 21 DAYS CYCLE)
     Route: 048
  7. LENALIDOMIDE [Suspect]
     Active Substance: LENALIDOMIDE
     Dosage: 10 MILLIGRAM, QD (TAKE 1 CAPSULE FOR 21 DAYS ON AND 07 DAYS OFF OF EACH 28 DAYS CYCLE)
     Route: 048
  8. LENALIDOMIDE [Suspect]
     Active Substance: LENALIDOMIDE
     Dosage: 25 MILLIGRAM, QD, (TAKE 1 CAPSULE FOR 14 DAYS ON AND 07 DAYS OFF OF EACH 21 DAYS CYCLE)
     Route: 048
  9. LENALIDOMIDE [Suspect]
     Active Substance: LENALIDOMIDE
     Dosage: 25 MILLIGRAM, QD, (TAKE 1 CAPSULE FOR 14 DAYS ON AND 07 DAYS OFF OF EACH 21 DAYS CYCLE)
     Route: 048
  10. LENALIDOMIDE [Suspect]
     Active Substance: LENALIDOMIDE
     Dosage: 25 MILLIGRAM, QD (TAKE 1 CAPSULE FOR 14 DAYS ON AND 07 DAYS OFF OF EACH 21 DAYS CYCLE)
     Route: 048
  11. LENALIDOMIDE [Suspect]
     Active Substance: LENALIDOMIDE
     Dosage: 25 MILLIGRAM, QD (TAKE 1 CAPSULE FOR 14 DAYS ON AND 07 DAYS OFF OF EACH 21 DAYS CYCLE)
     Route: 048
  12. LENALIDOMIDE [Suspect]
     Active Substance: LENALIDOMIDE
     Dosage: 10 MILLIGRAM, QD (TAKE 1 CAPSULE FOR 21 DAYS ON AND 07 DAYS OFF OF EACH 28 DAYS CYCLE)
     Route: 048
     Dates: start: 20241021, end: 2025
  13. FLONASE ALLERGY RELIEF [Concomitant]
     Active Substance: FLUTICASONE PROPIONATE
     Indication: Product used for unknown indication
     Route: 065
  14. 3 D [COLECALCIFEROL] [Concomitant]
     Indication: Product used for unknown indication
     Route: 048
  15. METAMUCIL 4 IN 1 FIBER [Concomitant]
     Indication: Product used for unknown indication
     Route: 065
  16. BIOTIN [Concomitant]
     Active Substance: BIOTIN
     Indication: Product used for unknown indication
     Route: 065
  17. ASPIRIN [Concomitant]
     Active Substance: ASPIRIN
     Indication: Product used for unknown indication
     Route: 065
  18. DEXAMETHASONE [Concomitant]
     Active Substance: DEXAMETHASONE
     Indication: Product used for unknown indication
     Route: 048
  19. VALACYCLOVIR HYDROCHLORIDE [Concomitant]
     Active Substance: VALACYCLOVIR HYDROCHLORIDE
     Indication: Product used for unknown indication
     Route: 065
  20. ALLOPURINOL [Concomitant]
     Active Substance: ALLOPURINOL
     Indication: Product used for unknown indication
     Route: 048
  21. FEXOFENADINE [Concomitant]
     Active Substance: FEXOFENADINE HYDROCHLORIDE
     Indication: Product used for unknown indication
     Route: 048
  22. ETODOLAC [Concomitant]
     Active Substance: ETODOLAC
     Indication: Product used for unknown indication
     Route: 065
  23. ZINC GLUCONATE [Concomitant]
     Active Substance: ZINC GLUCONATE
     Indication: Product used for unknown indication
     Route: 065
  24. FLUTICASONE PROPIONATE [Concomitant]
     Active Substance: FLUTICASONE PROPIONATE
     Indication: Product used for unknown indication
     Route: 045
  25. QUERCETIN [Concomitant]
     Active Substance: QUERCETIN
     Indication: Product used for unknown indication
     Route: 065
  26. LENALIDOMIDE AUROBINDO [Concomitant]
     Indication: Product used for unknown indication
     Dosage: 10 MILLIGRAM, QD 10 MILLIGRAM, QD (TAKE 1 CAPSULE FOR 14 DAYS ON AND 07 DAYS OFF OF EACH 21 DAYS CYC
     Route: 048
  27. SULFAMETHOXAZOLE\TRIMETHOPRIM [Concomitant]
     Active Substance: SULFAMETHOXAZOLE\TRIMETHOPRIM
     Indication: Product used for unknown indication
     Route: 065

REACTIONS (1)
  - Rash [Recovered/Resolved]

NARRATIVE: CASE EVENT DATE: 20250615
